FAERS Safety Report 16297940 (Version 15)
Quarter: 2025Q2

REPORT INFORMATION
  Report Type: Report from Study
  Country: US (occurrence: US)
  Receive Date: 20190510
  Receipt Date: 20250623
  Transmission Date: 20250717
  Serious: Yes (Hospitalization, Other)
  Sender: TAKEDA
  Company Number: US-SHIRE-US201915286

PATIENT
  Age: 52 Year
  Sex: Female

DRUGS (6)
  1. TEDUGLUTIDE [Suspect]
     Active Substance: TEDUGLUTIDE
     Indication: Short-bowel syndrome
  2. TEDUGLUTIDE [Suspect]
     Active Substance: TEDUGLUTIDE
     Dosage: UNK UNK, QD
     Dates: start: 20171128, end: 20210315
  3. TEDUGLUTIDE [Suspect]
     Active Substance: TEDUGLUTIDE
     Dosage: 0.33 MILLILITER, QD
     Dates: start: 20181012
  4. TEDUGLUTIDE [Suspect]
     Active Substance: TEDUGLUTIDE
  5. TEDUGLUTIDE [Suspect]
     Active Substance: TEDUGLUTIDE
  6. TEDUGLUTIDE [Suspect]
     Active Substance: TEDUGLUTIDE

REACTIONS (10)
  - Myocardial infarction [Unknown]
  - Vascular device infection [Unknown]
  - Renal disorder [Unknown]
  - Pneumonia [Unknown]
  - Lung disorder [Unknown]
  - Oropharyngeal pain [Unknown]
  - COVID-19 [Unknown]
  - Abdominal distension [Unknown]
  - Nasopharyngitis [Unknown]
  - Injection site pain [Unknown]

NARRATIVE: CASE EVENT DATE: 20240130
